FAERS Safety Report 23988339 (Version 2)
Quarter: 2024Q3

REPORT INFORMATION
  Report Type: Spontaneous
  Country: CA (occurrence: CA)
  Receive Date: 20240619
  Receipt Date: 20240720
  Transmission Date: 20241017
  Serious: Yes (Disabling)
  Sender: CELLTRION
  Company Number: CA-PFIZER INC-202400191241

PATIENT

DRUGS (5)
  1. INFLECTRA [Suspect]
     Active Substance: INFLIXIMAB-DYYB
     Indication: Rheumatoid arthritis
     Dosage: 3 MG/KG, EVERY 8 WEEK (0, 2, 6, THEN EVERY 8 WEEKS)
     Route: 042
     Dates: start: 20240110, end: 20240415
  2. INFLECTRA [Suspect]
     Active Substance: INFLIXIMAB-DYYB
     Dosage: 5 MG/KG, EVERY 4 WEEK
     Route: 042
     Dates: start: 20240513
  3. INFLECTRA [Suspect]
     Active Substance: INFLIXIMAB-DYYB
     Dosage: 410 MG, AFTER 4 WEEKS (5 MG/KG, EVERY 4 WEEK)
     Route: 042
     Dates: start: 20240610
  4. PREDNISONE [Concomitant]
     Active Substance: PREDNISONE
     Dosage: 1 DF
     Dates: start: 202308
  5. HYDROXYCHLOROQUINE [Concomitant]
     Active Substance: HYDROXYCHLOROQUINE
     Dosage: 1 DF
     Dates: start: 202309

REACTIONS (3)
  - Pain in extremity [Not Recovered/Not Resolved]
  - Oedema peripheral [Not Recovered/Not Resolved]
  - Gait disturbance [Not Recovered/Not Resolved]

NARRATIVE: CASE EVENT DATE: 20240501
